FAERS Safety Report 16049296 (Version 1)
Quarter: 2019Q1

REPORT INFORMATION
  Report Type: Report from Study
  Country: US (occurrence: US)
  Receive Date: 20190307
  Receipt Date: 20190307
  Transmission Date: 20190418
  Serious: Yes (Hospitalization)
  Sender: FDA-Public Use
  Company Number: US-PFIZER INC-2018504283

PATIENT
  Age: 59 Year
  Sex: Male
  Weight: 72.5 kg

DRUGS (3)
  1. PROPANOLOL HCL [Suspect]
     Active Substance: PROPRANOLOL HYDROCHLORIDE
     Indication: LARYNGEAL SQUAMOUS CELL CARCINOMA
     Dosage: 20 MG, 2X/DAY
     Route: 048
     Dates: start: 20180201
  2. PALBOCICLIB [Suspect]
     Active Substance: PALBOCICLIB
     Indication: LARYNGEAL SQUAMOUS CELL CARCINOMA
     Dosage: 125 MG, CYCLIC (DAY1-14 DAYS Q CYCLE)
     Route: 048
     Dates: start: 20180828, end: 20181124
  3. CARBOPLATIN. [Suspect]
     Active Substance: CARBOPLATIN
     Indication: LARYNGEAL SQUAMOUS CELL CARCINOMA
     Dosage: 4 AUC, Q CYCLE, IV INFUSION
     Route: 041
     Dates: start: 20180828, end: 20181124

REACTIONS (1)
  - Hypotension [Recovered/Resolved]

NARRATIVE: CASE EVENT DATE: 20181124
